FAERS Safety Report 21974490 (Version 1)
Quarter: 2023Q1

REPORT INFORMATION
  Report Type: Spontaneous
  Country: US (occurrence: US)
  Receive Date: 20230209
  Receipt Date: 20230209
  Transmission Date: 20230417
  Serious: No
  Sender: FDA-Public Use
  Company Number: US-LUNDBECK-DKLU3057323

PATIENT
  Age: 11 Month
  Sex: Female

DRUGS (6)
  1. SABRIL [Suspect]
     Active Substance: VIGABATRIN
     Indication: Infantile spasms
     Dosage: DAY 1 TO  5
     Route: 048
     Dates: start: 202211
  2. SABRIL [Suspect]
     Active Substance: VIGABATRIN
     Dosage: DAY 1 TO 5
     Route: 048
  3. SABRIL [Suspect]
     Active Substance: VIGABATRIN
     Dosage: DAY 6 TO 10
     Route: 048
  4. SABRIL [Suspect]
     Active Substance: VIGABATRIN
     Dosage: DAY 11 TO 15
     Route: 048
  5. SABRIL [Suspect]
     Active Substance: VIGABATRIN
     Dosage: DAY 11 TO 15
     Route: 048
  6. SABRIL [Suspect]
     Active Substance: VIGABATRIN
     Dosage: DAY 16 TO 20
     Route: 048

REACTIONS (1)
  - Drug ineffective [Unknown]
